FAERS Safety Report 5072877-0 (Version None)
Quarter: 2006Q3

REPORT INFORMATION
  Report Type: 
  Country: None (occurrence: None)
  Receive Date: 20060802
  Receipt Date: 20060712
  Transmission Date: 20061208
  Serious: Yes (Hospitalization)
  Sender: FDA-Public Use
  Company Number: T06-GER-02362-01

PATIENT
  Age: 82 Year
  Sex: Male
  Weight: 80 kg

DRUGS (9)
  1. MEMANTINE HCL [Suspect]
     Indication: DEMENTIA
     Dosage: 10 MG BID PO
     Route: 048
     Dates: start: 20060526
  2. MEMANTINE HCL [Suspect]
     Indication: DEMENTIA
     Dosage: 10 MG QD PO
     Route: 048
     Dates: start: 20060523, end: 20060525
  3. OXAZEPAM [Suspect]
     Indication: DRUG WITHDRAWAL SYNDROME
     Dosage: 5 MG BID
     Dates: start: 20060524
  4. OXAZEPAM [Suspect]
     Indication: DRUG WITHDRAWAL SYNDROME
     Dosage: 10 MG BID
     Dates: end: 20060523
  5. REMINYL (GALANTAMINE) [Concomitant]
  6. MELPERON (MELPERONE HYDROCHLORIDE) [Concomitant]
  7. DURAZANIL (BROMAZEPAM) [Concomitant]
  8. ATROVENT [Concomitant]
  9. TAMSULOSIN HCL [Concomitant]

REACTIONS (3)
  - CONVULSION [None]
  - STATUS EPILEPTICUS [None]
  - THERAPY NON-RESPONDER [None]
